FAERS Safety Report 6358404-6 (Version None)
Quarter: 2009Q3

REPORT INFORMATION
  Report Type: 
  Country: None (occurrence: None)
  Receive Date: 20090911
  Receipt Date: 20090831
  Transmission Date: 20100115
  Serious: Yes (Hospitalization, Other)
  Sender: FDA-Public Use
  Company Number: 230014J09CAN

PATIENT
  Age: 60 Year
  Sex: Female

DRUGS (7)
  1. REBIF [Suspect]
     Indication: RELAPSING-REMITTING MULTIPLE SCLEROSIS
     Dosage: 44 MCG, 3 IN 1 WEEKS
     Dates: start: 20090729, end: 20090827
  2. AMANTADINE HCL [Concomitant]
  3. GABAPENTIN [Concomitant]
  4. DIFENAC (DICLOFENAC SODIUM) [Concomitant]
  5. SANDOZ BISOPROLOL (BISOPROLOL /00802601/) [Concomitant]
  6. CYCLOBENZAPRINE [Concomitant]
  7. RAN-CITALO [CITALOPRAM HYDROBROMIDE] (CITALOPRAM HYDROBROMIDE) [Concomitant]

REACTIONS (11)
  - ABNORMAL BEHAVIOUR [None]
  - BLOOD PRESSURE INCREASED [None]
  - COMA [None]
  - DYSPNOEA [None]
  - FATIGUE [None]
  - GAIT DISTURBANCE [None]
  - HYPERSOMNIA [None]
  - INSOMNIA [None]
  - MUSCULOSKELETAL STIFFNESS [None]
  - NAUSEA [None]
  - PYREXIA [None]
